FAERS Safety Report 4889692-0 (Version None)
Quarter: 2006Q1

REPORT INFORMATION
  Report Type: 
  Country: None (occurrence: None)
  Receive Date: 20060124
  Receipt Date: 20060113
  Transmission Date: 20060701
  Serious: Yes (Hospitalization, Other)
  Sender: FDA-Public Use
  Company Number: PHBS2006KR01105

PATIENT
  Age: 21 Year
  Sex: Male

DRUGS (1)
  1. IMATINIB [Suspect]
     Indication: CHRONIC MYELOID LEUKAEMIA

REACTIONS (3)
  - HIP ARTHROPLASTY [None]
  - POST PROCEDURAL HAEMORRHAGE [None]
  - THROMBOCYTOPENIA [None]
